FAERS Safety Report 10763558 (Version 1)
Quarter: 2015Q1

REPORT INFORMATION
  Report Type: Other
  Country: KR (occurrence: KR)
  Receive Date: 20150204
  Receipt Date: 20150204
  Transmission Date: 20150721
  Serious: Yes (Death, Hospitalization)
  Sender: FDA-Public Use
  Company Number: KR-ENDO PHARMACEUTICALS INC-ALLO20150001

PATIENT
  Age: 84 Year
  Sex: Male

DRUGS (2)
  1. TORASEMIDE [Concomitant]
     Active Substance: TORSEMIDE
     Indication: NEPHROPATHY
     Route: 065
  2. ALLOPURINOL TABLETS 100MG [Suspect]
     Active Substance: ALLOPURINOL
     Indication: NEPHROPATHY
     Route: 065

REACTIONS (1)
  - Drug reaction with eosinophilia and systemic symptoms [Fatal]
